FAERS Safety Report 4559109-4 (Version None)
Quarter: 2005Q1

REPORT INFORMATION
  Report Type: 
  Country: None (occurrence: None)
  Receive Date: 20050124
  Receipt Date: 20050113
  Transmission Date: 20050727
  Serious: Yes (Other)
  Sender: FDA-Public Use
  Company Number: SEWYE336813JAN05

PATIENT
  Sex: Female

DRUGS (1)
  1. ENBREL [Suspect]
     Indication: RHEUMATOID ARTHRITIS
     Dosage: DOSAGE NOT SPECIFIED
     Dates: start: 20010101, end: 20041130

REACTIONS (2)
  - DISEASE RECURRENCE [None]
  - PLEURISY [None]
